FAERS Safety Report 12619649 (Version 1)
Quarter: 2016Q3

REPORT INFORMATION
  Report Type: Spontaneous
  Country: FR (occurrence: FR)
  Receive Date: 20160803
  Receipt Date: 20160803
  Transmission Date: 20161109
  Serious: Yes (Hospitalization)
  Sender: FDA-Public Use
  Company Number: PHHY2016FR103140

PATIENT
  Age: 1 Year
  Sex: Female
  Weight: 13 kg

DRUGS (3)
  1. ILARIS [Suspect]
     Active Substance: CANAKINUMAB
     Indication: AUTOINFLAMMATORY DISEASE
     Dosage: 50 MG, EVERY 4 WEEKS
     Route: 058
     Dates: start: 20160409, end: 20160602
  2. ILARIS [Suspect]
     Active Substance: CANAKINUMAB
     Indication: URTICARIA
  3. ILARIS [Suspect]
     Active Substance: CANAKINUMAB
     Indication: ARTHRALGIA

REACTIONS (6)
  - Toxic skin eruption [Recovered/Resolved]
  - Eczema [Unknown]
  - Eosinophilia [Unknown]
  - Pyrexia [Unknown]
  - Pruritus [Unknown]
  - Product use issue [Unknown]

NARRATIVE: CASE EVENT DATE: 20160409
